FAERS Safety Report 5232210-8 (Version None)
Quarter: 2007Q1

REPORT INFORMATION
  Report Type: 
  Country: None (occurrence: None)
  Receive Date: 20070207
  Receipt Date: 20070129
  Transmission Date: 20070707
  Serious: Yes (Other)
  Sender: FDA-Public Use
  Company Number: US-JNJFOC-20070107308

PATIENT
  Sex: Female
  Weight: 71.22 kg

DRUGS (10)
  1. REMICADE [Suspect]
     Indication: RHEUMATOID ARTHRITIS
     Route: 042
  2. ADVAIR DISKUS 100/50 [Concomitant]
  3. LEVOTHYROXINE SODIUM [Concomitant]
  4. EFFEXOR [Concomitant]
  5. FOLIC ACID [Concomitant]
  6. VICODIN [Concomitant]
  7. LORAZEPAM [Concomitant]
  8. PREDNISONE [Concomitant]
  9. EYE DROPS [Concomitant]
  10. DUONEB [Concomitant]

REACTIONS (2)
  - BREAST CYST [None]
  - CORNEAL DISORDER [None]
